FAERS Safety Report 22984573 (Version 2)
Quarter: 2023Q4

REPORT INFORMATION
  Report Type: Spontaneous
  Country: CA (occurrence: CA)
  Receive Date: 20230926
  Receipt Date: 20231121
  Transmission Date: 20240110
  Serious: Yes (Other)
  Sender: FDA-Public Use
  Company Number: CA-CELLTRION INC.-2023CA013281

PATIENT

DRUGS (1)
  1. INFLECTRA [Suspect]
     Active Substance: INFLIXIMAB-DYYB
     Indication: Crohn^s disease
     Dosage: 5 MG/KG EVERY 7 WEEKS
     Route: 042
     Dates: start: 20230902, end: 20230902

REACTIONS (5)
  - Colon cancer metastatic [Not Recovered/Not Resolved]
  - Psoriasis [Not Recovered/Not Resolved]
  - C-reactive protein increased [Unknown]
  - Gout [Unknown]
  - Off label use [Unknown]

NARRATIVE: CASE EVENT DATE: 20230901
